FAERS Safety Report 5001793-5 (Version None)
Quarter: 2006Q2

REPORT INFORMATION
  Report Type: 
  Country: None (occurrence: None)
  Receive Date: 20060515
  Receipt Date: 20060405
  Transmission Date: 20061013
  Serious: Yes (Disabling)
  Sender: FDA-Public Use
  Company Number: GB-AVENTIS-200613939GDDC

PATIENT
  Age: 18 Year
  Sex: Female

DRUGS (1)
  1. TAXOTERE [Suspect]

REACTIONS (9)
  - ACCIDENTAL EXPOSURE [None]
  - DRY EYE [None]
  - EYE INFLAMMATION [None]
  - EYE IRRITATION [None]
  - EYE PAIN [None]
  - EYE PRURITUS [None]
  - EYE SWELLING [None]
  - EYELID MARGIN CRUSTING [None]
  - LACRIMATION INCREASED [None]
